FAERS Safety Report 7350494-7 (Version None)
Quarter: 2011Q1

REPORT INFORMATION
  Report Type: 
  Country: None (occurrence: None)
  Receive Date: 20110314
  Receipt Date: 20110302
  Transmission Date: 20110831
  Serious: Yes (Hospitalization, Disabling, Other)
  Sender: FDA-Public Use
  Company Number: NO-JNJFOC-20110301383

PATIENT
  Sex: Female

DRUGS (6)
  1. HALDOL [Suspect]
     Dosage: HIGH DOSE UPTO 32MG/DAY, 1 TABLET IN MORNING AND 2 TABLETS IN EVENING.
     Route: 065
  2. SIMVASTATIN [Concomitant]
     Dosage: 20 MG X 1
     Route: 065
  3. HALDOL [Suspect]
     Indication: BIPOLAR I DISORDER
     Dosage: LOW VARYING DOSE, 1 TABLET IN MORNING AND 2 TABLETS IN EVENING.
     Route: 065
  4. ALBYL-E [Concomitant]
     Route: 065
  5. HALDOL [Suspect]
     Dosage: 1 TABLET IN THE MORNING AND 2 TABLETS IN THE EVENING
     Route: 065
  6. AKINETON [Concomitant]
     Indication: BIPOLAR I DISORDER
     Dosage: 1 TABLET IN MORNING AND 2 TABLETS IN EVENING
     Route: 065

REACTIONS (5)
  - CEREBROVASCULAR ACCIDENT [None]
  - TREMOR [None]
  - FEELING OF RELAXATION [None]
  - SOCIAL AVOIDANT BEHAVIOUR [None]
  - DYSKINESIA [None]
